FAERS Safety Report 11933929 (Version 1)
Quarter: 2016Q1

REPORT INFORMATION
  Report Type: Spontaneous
  Country: DE (occurrence: DE)
  Receive Date: 20160121
  Receipt Date: 20160121
  Transmission Date: 20160526
  Serious: Yes (Other)
  Sender: FDA-Public Use
  Company Number: DE-MYLANLABS-2016M1002488

PATIENT

DRUGS (6)
  1. TACROLIMUS. [Suspect]
     Active Substance: TACROLIMUS
     Indication: BEHCET^S SYNDROME
     Dosage: TARGET LEVEL 7-10 MICROG/L
     Route: 048
  2. AZATHIOPRINE. [Concomitant]
     Active Substance: AZATHIOPRINE
     Dosage: 100 MG/DAY; GRADUALLY INCREASED TO 150 MG/DAY WITHIN 2 WEEKS
     Route: 065
  3. PREDNISOLONE. [Concomitant]
     Active Substance: PREDNISOLONE
     Dosage: PULSE THERAPY 100 MG/DAY REDUCED TO 50 MG/ DAY
     Route: 065
  4. ADALIMUMAB [Suspect]
     Active Substance: ADALIMUMAB
     Indication: COLITIS ULCERATIVE
     Dosage: STANDARD REGIMEN 160 MG / 80 MG
     Route: 065
  5. INFLIXIMAB [Suspect]
     Active Substance: INFLIXIMAB
     Indication: COLITIS ULCERATIVE
     Dosage: 2 APPLICATIONS
     Route: 065
  6. CICLOSPORIN [Concomitant]
     Active Substance: CYCLOSPORINE
     Indication: BEHCET^S SYNDROME
     Dosage: TARGET LEVEL 250-400 NG/ML
     Route: 042

REACTIONS (5)
  - Acute kidney injury [Unknown]
  - Gingivitis ulcerative [Unknown]
  - Sepsis [Unknown]
  - Hypersensitivity vasculitis [Unknown]
  - Superinfection bacterial [Unknown]
